FAERS Safety Report 8442814-7 (Version None)
Quarter: 2012Q2

REPORT INFORMATION
  Report Type: 
  Country: None (occurrence: None)
  Receive Date: 20120615
  Receipt Date: 20120606
  Transmission Date: 20120825
  Serious: Yes (Other)
  Sender: FDA-Public Use
  Company Number: US-ASTRAZENECA-2011SE00167

PATIENT
  Age: 45 Year
  Sex: Female
  Weight: 80.7 kg

DRUGS (8)
  1. SEROQUEL XR [Suspect]
     Indication: MAJOR DEPRESSION
     Route: 048
  2. ZOLOFT [Concomitant]
  3. SEROQUEL XR [Suspect]
     Route: 048
  4. SEROQUEL XR [Suspect]
     Route: 048
  5. SEROQUEL XR [Suspect]
     Indication: BIPOLAR DISORDER
     Route: 048
  6. AMBIEN [Concomitant]
  7. SEROQUEL XR [Suspect]
     Route: 048
  8. SEROQUEL XR [Suspect]
     Indication: SCHIZOPHRENIA
     Route: 048

REACTIONS (14)
  - SUICIDAL IDEATION [None]
  - MALAISE [None]
  - FEELING OF BODY TEMPERATURE CHANGE [None]
  - CONFUSIONAL STATE [None]
  - SUBMANDIBULAR MASS [None]
  - HEADACHE [None]
  - ADVERSE EVENT [None]
  - DRUG DOSE OMISSION [None]
  - HOMICIDAL IDEATION [None]
  - DIARRHOEA [None]
  - HYPERHIDROSIS [None]
  - VOMITING [None]
  - PNEUMONIA [None]
  - THYROID DISORDER [None]
